FAERS Safety Report 5285150-2 (Version None)
Quarter: 2007Q1

REPORT INFORMATION
  Report Type: 
  Country: None (occurrence: None)
  Receive Date: 20070328
  Receipt Date: 20070312
  Transmission Date: 20070707
  Serious: Yes (Death, Congenital Anomaly, Other)
  Sender: FDA-Public Use
  Company Number: 190003L07JPN

PATIENT
  Age: 21 Week

DRUGS (2)
  1. MENOTROPINS [Suspect]
     Indication: IN VITRO FERTILISATION
     Dosage: IVF
  2. CLOMID [Suspect]
     Indication: IN VITRO FERTILISATION
     Dosage: IVF

REACTIONS (4)
  - ABORTION INDUCED [None]
  - CHROMOSOME ABNORMALITY [None]
  - CONJOINED TWINS [None]
  - DRUG EXPOSURE DURING PREGNANCY [None]
